FAERS Safety Report 6641518-0 (Version None)
Quarter: 2010Q1

REPORT INFORMATION
  Report Type: 
  Country: None (occurrence: None)
  Receive Date: 20100317
  Receipt Date: 20100317
  Transmission Date: 20100710
  Serious: Yes (Life-Threatening, Other)
  Sender: FDA-Public Use
  Company Number: None

PATIENT
  Age: 70 Year
  Sex: Male
  Weight: 89 kg

DRUGS (8)
  1. INSULIN ASPARTE [Suspect]
     Indication: HYPERKALAEMIA
     Dosage: 10 UNITS ONCE IV
     Route: 042
     Dates: start: 20091231
  2. HEPARIN [Concomitant]
  3. CALCIUM GLUCONATE [Concomitant]
  4. CEFEPIME [Concomitant]
  5. M.V.I. [Concomitant]
  6. PREDNISONE [Concomitant]
  7. SODIUM POLYSTYRENE SULFONATE [Concomitant]
  8. TACROLIMUS [Concomitant]

REACTIONS (9)
  - BLOOD GLUCOSE DECREASED [None]
  - BLOOD GLUCOSE FLUCTUATION [None]
  - COLD SWEAT [None]
  - DYSPNOEA [None]
  - ELECTROCARDIOGRAM T WAVE PEAKED [None]
  - HYPERHIDROSIS [None]
  - HYPERKALAEMIA [None]
  - INCORRECT DOSE ADMINISTERED [None]
  - MUSCLE SPASMS [None]
